FAERS Safety Report 6741321-7 (Version None)
Quarter: 2010Q2

REPORT INFORMATION
  Report Type: 
  Country: None (occurrence: None)
  Receive Date: 20100526
  Receipt Date: 20100429
  Transmission Date: 20101027
  Serious: Yes (Other)
  Sender: FDA-Public Use
  Company Number: CN-PFIZER INC-2010054069

PATIENT
  Age: 79 Year
  Sex: Female

DRUGS (1)
  1. GLUCOTROL [Suspect]
     Indication: TYPE 2 DIABETES MELLITUS
     Dosage: 5 MG, 1X/DAY
     Route: 048
     Dates: start: 20100429, end: 20100504

REACTIONS (7)
  - ANGER [None]
  - ANXIETY [None]
  - HYPOKALAEMIA [None]
  - INITIAL INSOMNIA [None]
  - NAUSEA [None]
  - TACHYARRHYTHMIA [None]
  - VOMITING [None]
